FAERS Safety Report 14592225 (Version 1)
Quarter: 2018Q1

REPORT INFORMATION
  Report Type: Spontaneous
  Country: US (occurrence: US)
  Receive Date: 20180302
  Receipt Date: 20180302
  Transmission Date: 20180509
  Serious: Yes (Death)
  Sender: FDA-Public Use
  Company Number: US-ASTELLAS-2018US010526

PATIENT
  Age: 94 Year
  Sex: Male

DRUGS (1)
  1. TARCEVA [Suspect]
     Active Substance: ERLOTINIB HYDROCHLORIDE
     Indication: LUNG NEOPLASM MALIGNANT
     Dosage: 1 TAB EVERY DAY
     Route: 048
     Dates: start: 20170518, end: 20180216

REACTIONS (1)
  - Death [Fatal]

NARRATIVE: CASE EVENT DATE: 20180216
